FAERS Safety Report 10408450 (Version 1)
Quarter: 2014Q3

REPORT INFORMATION
  Report Type: Spontaneous
  Country: US (occurrence: None)
  Receive Date: 20140822
  Receipt Date: 20140822
  Transmission Date: 20150326
  Serious: No
  Sender: FDA-Public Use
  Company Number: None

PATIENT
  Age: 62 Year
  Sex: Female
  Weight: 74.84 kg

DRUGS (1)
  1. LASTACAFT [Suspect]
     Active Substance: ALCAFTADINE
     Indication: EYE ALLERGY
     Dosage: 1 DROP IN EACH EYE ONCE DAILY INTO THE EYE
     Route: 047
     Dates: start: 20140508, end: 20140515

REACTIONS (3)
  - Dizziness [None]
  - Impaired driving ability [None]
  - Activities of daily living impaired [None]

NARRATIVE: CASE EVENT DATE: 20140415
